FAERS Safety Report 15972678 (Version 1)
Quarter: 2019Q1

REPORT INFORMATION
  Report Type: Report from Study
  Country: IT (occurrence: IT)
  Receive Date: 20190216
  Receipt Date: 20190216
  Transmission Date: 20190418
  Serious: Yes (Other)
  Sender: FDA-Public Use
  Company Number: IT-ACCORD-107640

PATIENT
  Age: 62 Year
  Sex: Female

DRUGS (3)
  1. SIMVASTATIN. [Suspect]
     Active Substance: SIMVASTATIN
     Indication: PRODUCT USED FOR UNKNOWN INDICATION
     Dosage: REGIMEN 1
     Route: 065
  2. INFLUENZA VACCINE [Interacting]
     Active Substance: INFLUENZA VIRUS VACCINE
     Indication: INFLUENZA IMMUNISATION
     Route: 065
  3. SULINDAC/SULINDAC SODIUM [Concomitant]
     Indication: PRODUCT USED FOR UNKNOWN INDICATION
     Route: 065

REACTIONS (6)
  - Myasthenic syndrome [Recovered/Resolved]
  - Guillain-Barre syndrome [Recovered/Resolved]
  - Asthenia [Recovered/Resolved]
  - Myopathy [Recovered/Resolved]
  - Pain [Recovered/Resolved]
  - Drug interaction [Unknown]
